FAERS Safety Report 16574603 (Version 1)
Quarter: 2019Q3

REPORT INFORMATION
  Report Type: Spontaneous
  Country: US (occurrence: US)
  Receive Date: 20190715
  Receipt Date: 20190715
  Transmission Date: 20191004
  Serious: No
  Sender: FDA-Public Use
  Company Number: US-NOVOPROD-638050

PATIENT
  Age: 57 Year
  Sex: Male

DRUGS (1)
  1. OZEMPIC [Suspect]
     Active Substance: SEMAGLUTIDE
     Indication: PRODUCT USED FOR UNKNOWN INDICATION
     Dosage: 0.5 MG, UNK
     Route: 058
     Dates: start: 20181209

REACTIONS (3)
  - Inappropriate schedule of product administration [Unknown]
  - Odynophagia [Not Recovered/Not Resolved]
  - Sensation of foreign body [Not Recovered/Not Resolved]

NARRATIVE: CASE EVENT DATE: 20181209
